FAERS Safety Report 6637390-5 (Version None)
Quarter: 2010Q1

REPORT INFORMATION
  Report Type: 
  Country: None (occurrence: None)
  Receive Date: 20100316
  Receipt Date: 20100315
  Transmission Date: 20100710
  Serious: Yes (Hospitalization)
  Sender: FDA-Public Use
  Company Number: FR-MERCK-1003FRA00009

PATIENT
  Age: 7 Year
  Sex: Female
  Weight: 22 kg

DRUGS (5)
  1. SINGULAIR [Suspect]
     Indication: ASTHMA
     Route: 048
     Dates: start: 20090910, end: 20091228
  2. DESLORATADINE [Concomitant]
     Route: 048
     Dates: start: 20090910
  3. BECLOMETHASONE DIPROPIONATE [Concomitant]
     Route: 055
     Dates: start: 20090910
  4. SALMETEROL XINAFOATE [Concomitant]
     Route: 055
     Dates: start: 20090910
  5. ALBUTEROL SULFATE [Concomitant]
     Route: 055

REACTIONS (4)
  - ANGER [None]
  - HALLUCINATION, VISUAL [None]
  - INSOMNIA [None]
  - PSYCHOMOTOR HYPERACTIVITY [None]
